FAERS Safety Report 23830828 (Version 2)
Quarter: 2024Q2

REPORT INFORMATION
  Report Type: Spontaneous
  Country: US (occurrence: US)
  Receive Date: 20240508
  Receipt Date: 20240619
  Transmission Date: 20240716
  Serious: No
  Sender: FDA-Public Use
  Company Number: US-BAYER-2024A063676

PATIENT
  Age: 59 Year
  Sex: Female

DRUGS (2)
  1. CLIMARA [Suspect]
     Active Substance: ESTRADIOL
     Dosage: 0.075 MG
     Route: 023
     Dates: start: 20240306
  2. CLIMARA [Suspect]
     Active Substance: ESTRADIOL
     Dosage: 0.1 MG
     Route: 023

REACTIONS (3)
  - Drug ineffective [None]
  - Device adhesion issue [None]
  - Menopausal symptoms [None]
